FAERS Safety Report 18663366 (Version 2)
Quarter: 2020Q4

REPORT INFORMATION
  Report Type: Report from Study
  Country: ES (occurrence: ES)
  Receive Date: 20201224
  Receipt Date: 20201230
  Transmission Date: 20210114
  Serious: Yes (Hospitalization)
  Sender: FDA-Public Use
  Company Number: ES-SA-2020SA363336

PATIENT

DRUGS (13)
  1. IRINOTECAN [Suspect]
     Active Substance: IRINOTECAN
     Dosage: 264.9 MG, Q15D
     Route: 042
     Dates: start: 20201104, end: 20201104
  2. VALSARTAN + HCTZ [Concomitant]
     Active Substance: HYDROCHLOROTHIAZIDE\VALSARTAN
     Indication: HYPERTENSION
     Dosage: 320/25 MG
     Route: 048
     Dates: start: 20201202
  3. FLUOROURACIL. [Suspect]
     Active Substance: FLUOROURACIL
     Dosage: 529.8 MG, Q15D
     Route: 040
     Dates: start: 20201104, end: 20201104
  4. FOLINIC ACID [Suspect]
     Active Substance: LEUCOVORIN
     Indication: COLORECTAL CANCER
     Dosage: 706.4 MG, Q15D
     Route: 042
     Dates: start: 20201209, end: 20201209
  5. AMLODIPINE [Concomitant]
     Active Substance: AMLODIPINE BESYLATE
     Indication: HYPERTENSION
     Dosage: 10 MG
     Route: 048
     Dates: start: 20201202
  6. IRINOTECAN [Suspect]
     Active Substance: IRINOTECAN
     Indication: COLORECTAL CANCER
     Dosage: 264.9 MG, Q15D
     Route: 042
     Dates: start: 20201209, end: 20201209
  7. FLUOROURACIL. [Suspect]
     Active Substance: FLUOROURACIL
     Dosage: 3532 MG, Q15D
     Route: 042
     Dates: start: 20201104, end: 20201104
  8. FOLINIC ACID [Suspect]
     Active Substance: LEUCOVORIN
     Dosage: 706.4 MG, Q15D
     Route: 042
     Dates: start: 20201104, end: 20201104
  9. FLUOROURACIL. [Suspect]
     Active Substance: FLUOROURACIL
     Indication: COLORECTAL CANCER
     Dosage: 529.8 MG, Q15D
     Route: 040
     Dates: start: 20201209, end: 20201209
  10. AFLIBERCEPT [Suspect]
     Active Substance: AFLIBERCEPT
     Indication: COLORECTAL CANCER
     Dosage: 278 MG, Q15D
     Route: 042
     Dates: start: 20201209, end: 20201209
  11. AFLIBERCEPT [Suspect]
     Active Substance: AFLIBERCEPT
     Dosage: 278 MG, Q15D
     Route: 042
     Dates: start: 20201104, end: 20201104
  12. FLUOROURACIL. [Suspect]
     Active Substance: FLUOROURACIL
     Dosage: 3532 MG, Q15D
     Route: 042
     Dates: start: 20201209, end: 20201209
  13. HEPARIN [Concomitant]
     Active Substance: HEPARIN SODIUM
     Indication: THROMBOSIS PROPHYLAXIS
     Dosage: UNK
     Route: 058
     Dates: start: 2016

REACTIONS (1)
  - Renal failure [Recovered/Resolved]

NARRATIVE: CASE EVENT DATE: 20201216
